FAERS Safety Report 25180463 (Version 1)
Quarter: 2025Q2

REPORT INFORMATION
  Report Type: Spontaneous
  Country: FR (occurrence: FR)
  Receive Date: 20250409
  Receipt Date: 20250409
  Transmission Date: 20250717
  Serious: Yes (Hospitalization, Other)
  Sender: PFIZER
  Company Number: FR-PFIZER INC-2008033501

PATIENT
  Age: 42 Year
  Sex: Male
  Weight: 68 kg

DRUGS (1)
  1. CYTARABINE [Suspect]
     Active Substance: CYTARABINE
     Indication: Acute lymphocytic leukaemia
     Route: 042
     Dates: start: 20080103, end: 20080103

REACTIONS (7)
  - Cerebellar syndrome [Recovering/Resolving]
  - Toxic skin eruption [Recovered/Resolved]
  - Thrombosis [Unknown]
  - Bone marrow failure [Not Recovered/Not Resolved]
  - Respiratory distress [Unknown]
  - Pyrexia [Not Recovered/Not Resolved]
  - Osteitis [Unknown]

NARRATIVE: CASE EVENT DATE: 20080106
